FAERS Safety Report 14163130 (Version 1)
Quarter: 2017Q4

REPORT INFORMATION
  Report Type: Spontaneous
  Country: GB (occurrence: GB)
  Receive Date: 20171107
  Receipt Date: 20171107
  Transmission Date: 20180321
  Serious: Yes (Other)
  Sender: FDA-Public Use
  Company Number: GB-009507513-1710GBR015727

PATIENT
  Age: 74 Year
  Sex: Male

DRUGS (4)
  1. ROPINIROLE. [Concomitant]
     Active Substance: ROPINIROLE
     Dosage: 4 MG, TID
     Route: 048
  2. CANDESARTAN. [Concomitant]
     Active Substance: CANDESARTAN
     Dosage: 8 MG, QD
     Route: 048
  3. SINEMET [Suspect]
     Active Substance: CARBIDOPA\LEVODOPA
     Indication: PARKINSON^S DISEASE
     Dosage: 25/100MG, POSSIBLY 4 TIMES A DAY
     Route: 048
  4. LEUPROLIDE [Concomitant]
     Active Substance: LEUPROLIDE
     Dosage: 11.25 MG, QM3
     Route: 058

REACTIONS (2)
  - Metastatic malignant melanoma [Not Recovered/Not Resolved]
  - Small intestine carcinoma [Not Recovered/Not Resolved]
